FAERS Safety Report 8722334 (Version 3)
Quarter: 2012Q4

REPORT INFORMATION
  Report Type: 
  Country: JP (occurrence: JP)
  Receive Date: 20120814
  Receipt Date: 20121219
  Transmission Date: 20130627
  Serious: Yes (Other)
  Sender: FDA-Public Use
  Company Number: JP-MSD JAPAN-2012SP036400

PATIENT
  Age: 46 Year
  Sex: Male
  Weight: 60 kg

DRUGS (21)
  1. PEGINTERFERON ALFA-2B [Suspect]
     Indication: CHRONIC HEPATITIS C
     Dosage: 1.5 microgram per kilogram, qw
     Route: 058
     Dates: start: 20120417, end: 20120924
  2. REBETOL [Suspect]
     Indication: CHRONIC HEPATITIS C
     Dosage: 600 mg, QD
     Route: 048
     Dates: start: 20120417, end: 20120513
  3. REBETOL [Suspect]
     Dosage: 200 mg, QD
     Route: 048
     Dates: start: 20120514, end: 20120527
  4. REBETOL [Suspect]
     Dosage: 400 mg, QD
     Route: 048
     Dates: start: 20120528, end: 20120624
  5. REBETOL [Suspect]
     Dosage: 600 mg, QD
     Route: 048
     Dates: start: 20120625, end: 20120722
  6. REBETOL [Suspect]
     Dosage: 400 mg, qd
     Route: 048
     Dates: start: 20120723, end: 20120826
  7. REBETOL [Suspect]
     Dosage: 600 mg, qd
     Route: 048
     Dates: start: 20120827, end: 20120902
  8. REBETOL [Suspect]
     Dosage: 800 mg, qd
     Route: 048
     Dates: start: 20120903, end: 20120924
  9. REBETOL [Suspect]
     Dosage: UNK
  10. TELAVIC [Suspect]
     Indication: CHRONIC HEPATITIS C
     Dosage: 1000 mg, qd
     Route: 048
     Dates: start: 20120417, end: 20120709
  11. LIVALO [Concomitant]
     Indication: HYPERLIPIDAEMIA
     Dosage: 2 mg, qd FORM: POR
     Route: 048
  12. EPADEL [Concomitant]
     Indication: HYPERLIPIDAEMIA
     Dosage: 1800 mg: Formulation POR
     Route: 048
  13. FEROTYM [Concomitant]
     Indication: IRON DEFICIENCY ANAEMIA
     Dosage: 100 mg, qd FORM: POR
     Route: 048
  14. CLARITIN REDITABS [Concomitant]
     Indication: PROPHYLAXIS
     Dosage: 10 mg, qd FORM: POR
     Route: 048
  15. GOODMIN [Concomitant]
     Indication: DEPRESSION
     Dosage: 0.5 mg, qd
     Route: 048
  16. ROHYPNOL [Concomitant]
     Indication: DEPRESSION
     Dosage: 2 mg, qd FORM: POR
     Route: 048
  17. SEROQUEL [Concomitant]
     Indication: DEPRESSION
     Dosage: 12.5 mg, qd FORM: POR
     Route: 048
  18. TOLEDOMIN [Concomitant]
     Indication: DEPRESSION
     Dosage: 60 mg, qd FORM: POR
     Route: 048
  19. WYPAX [Concomitant]
     Indication: DEPRESSION
     Dosage: 0.5 mg, qd FORM: POR
     Route: 048
  20. PAXIL [Concomitant]
     Indication: DEPRESSION
     Dosage: 40 mg, qd FORM: POR
     Route: 048
  21. MAGLAX (MAGNESIUM OXIDE) [Concomitant]
     Indication: CONSTIPATION
     Dosage: 750 mg, qd FORM: POR
     Route: 048

REACTIONS (1)
  - Anaemia [Not Recovered/Not Resolved]
